FAERS Safety Report 10377388 (Version 2)
Quarter: 2014Q4

REPORT INFORMATION
  Report Type: Spontaneous
  Country: JP (occurrence: JP)
  Receive Date: 20140812
  Receipt Date: 20141103
  Transmission Date: 20150528
  Serious: Yes (Hospitalization)
  Sender: FDA-Public Use
  Company Number: PHHY2010JP096193

PATIENT
  Age: 71 Year
  Sex: Male

DRUGS (3)
  1. EXJADE [Suspect]
     Active Substance: DEFERASIROX
     Indication: APLASTIC ANAEMIA
     Dosage: 500 MG, DAILY
     Dates: start: 20080901
  2. EXJADE [Suspect]
     Active Substance: DEFERASIROX
     Dosage: 250 MG, DAILY
  3. EXJADE [Suspect]
     Active Substance: DEFERASIROX
     Dosage: 500 MG, DAILY
     Dates: start: 201002

REACTIONS (2)
  - Infection [Unknown]
  - Blood creatinine increased [Unknown]
